FAERS Safety Report 21369283 (Version 8)
Quarter: 2022Q4

REPORT INFORMATION
  Report Type: Spontaneous
  Country: US (occurrence: US)
  Receive Date: 20220923
  Receipt Date: 20221026
  Transmission Date: 20230113
  Serious: No
  Sender: FDA-Public Use
  Company Number: US-NOVARTISTESTPH-NVSC2022US215309

PATIENT
  Age: 66 Year
  Sex: Female
  Weight: 45.8 kg

DRUGS (5)
  1. LEQVIO [Suspect]
     Active Substance: INCLISIRAN SODIUM
     Indication: Low density lipoprotein decreased
     Dosage: 284 MG, OTHER, (INITIAL DOSE, SECOND INJECTION AT 90 DAYS, AND THEN EVERY 6 MONTHS THEREAFTER)
     Route: 058
     Dates: start: 20220908, end: 20220908
  2. LEQVIO [Suspect]
     Active Substance: INCLISIRAN SODIUM
     Indication: Rash
     Dosage: 284 MG,  (TWICE A YEAR)
     Route: 058
     Dates: start: 20220907
  3. LEQVIO [Suspect]
     Active Substance: INCLISIRAN SODIUM
     Indication: Swelling
  4. LEQVIO [Suspect]
     Active Substance: INCLISIRAN SODIUM
     Indication: Erythema
  5. LEQVIO [Suspect]
     Active Substance: INCLISIRAN SODIUM
     Indication: Injection site warmth

REACTIONS (5)
  - Rash [Not Recovered/Not Resolved]
  - Frustration tolerance decreased [Unknown]
  - Emotional distress [Unknown]
  - Injection site erythema [Not Recovered/Not Resolved]
  - Product use in unapproved indication [Unknown]

NARRATIVE: CASE EVENT DATE: 20220907
